FAERS Safety Report 15982685 (Version 1)
Quarter: 2019Q1

REPORT INFORMATION
  Report Type: Spontaneous
  Country: DE (occurrence: DE)
  Receive Date: 20190219
  Receipt Date: 20190219
  Transmission Date: 20190418
  Serious: Yes (Other)
  Sender: FDA-Public Use
  Company Number: DE-PFIZER INC-2019065755

PATIENT
  Sex: Female

DRUGS (6)
  1. ISMN-ALIUD [Suspect]
     Active Substance: ISOSORBIDE MONONITRATE
     Dosage: 60 MG, 1X/DAY
     Route: 048
  2. ASS 1 A PHARMA [Suspect]
     Active Substance: ASPIRIN
     Dosage: 0.5 DF, 2X/DAY
     Route: 048
  3. CANDESARTAN 1 A PHARMA [Suspect]
     Active Substance: CANDESARTAN
     Dosage: 0.5 DF, 2X/DAY
     Route: 048
  4. ATORVASTATIN CALCIUM. [Suspect]
     Active Substance: ATORVASTATIN CALCIUM
     Dosage: 10 MG, 1X/DAY
     Route: 048
  5. L-THYROXIN HENNING [Suspect]
     Active Substance: LEVOTHYROXINE SODIUM
     Dosage: 50 UG, 1X/DAY
     Route: 048
  6. TORASEMID HEXAL [Suspect]
     Active Substance: TORSEMIDE
     Dosage: 0.5 DF, 2X/DAY
     Route: 048

REACTIONS (1)
  - Blood pressure increased [Unknown]

NARRATIVE: CASE EVENT DATE: 20190115
